FAERS Safety Report 9041952 (Version 1)
Quarter: 2013Q1

REPORT INFORMATION
  Report Type: Report from Study
  Country: US (occurrence: US)
  Receive Date: 20130129
  Receipt Date: 20130129
  Transmission Date: 20140127
  Serious: No
  Sender: FDA-Public Use
  Company Number: US-ABBOTT-12P-163-0905485-00

PATIENT
  Age: 47 Year
  Sex: Male

DRUGS (8)
  1. HUMIRA 40 MG/0.8 ML PEN [Suspect]
     Indication: PSORIASIS
     Dates: end: 20111210
  2. HUMIRA 40 MG/0.8 ML PEN [Suspect]
     Dates: start: 20120114
  3. PRILOSEC [Concomitant]
     Indication: ULCER
  4. CALCITRATE [Concomitant]
     Indication: ULCER
     Dosage: PATIENT REPORTED TAKING IT NOW ONLY WHEN HE EATS SOMETHING SPICY
  5. IRON [Concomitant]
     Indication: PRODUCT USED FOR UNKNOWN INDICATION
  6. B12 [Concomitant]
     Indication: PRODUCT USED FOR UNKNOWN INDICATION
  7. CALCIUM [Concomitant]
     Indication: PRODUCT USED FOR UNKNOWN INDICATION
  8. CALCIUM [Concomitant]

REACTIONS (2)
  - Sinusitis [Recovered/Resolved]
  - Psoriasis [Unknown]
